APPROVED DRUG PRODUCT: CUBICIN
Active Ingredient: DAPTOMYCIN
Strength: 250MG/VIAL **Federal Register determination that product was not discontinued or withdrawn for safety or effectiveness reasons**
Dosage Form/Route: POWDER;INTRAVENOUS
Application: N021572 | Product #001
Applicant: CUBIST PHARMACEUTICALS LLC
Approved: Sep 12, 2003 | RLD: No | RS: No | Type: DISCN